FAERS Safety Report 15733072 (Version 1)
Quarter: 2018Q4

REPORT INFORMATION
  Report Type: Spontaneous
  Country: US (occurrence: US)
  Receive Date: 20181218
  Receipt Date: 20181218
  Transmission Date: 20190205
  Serious: No
  Sender: FDA-Public Use
  Company Number: US-DRREDDYS-USA/USA/17/0095323

PATIENT
  Age: 34 Year
  Sex: Female
  Weight: 49.9 kg

DRUGS (1)
  1. NICOTINE. [Suspect]
     Active Substance: NICOTINE
     Indication: SMOKING CESSATION THERAPY
     Route: 065
     Dates: start: 20171218

REACTIONS (6)
  - Nicotine dependence [Unknown]
  - Heart rate increased [Unknown]
  - Dizziness [Unknown]
  - Anxiety [Unknown]
  - Treatment noncompliance [Unknown]
  - Overdose [Unknown]
